FAERS Safety Report 12483121 (Version 2)
Quarter: 2016Q3

REPORT INFORMATION
  Report Type: Report from Study
  Country: IT (occurrence: IT)
  Receive Date: 20160620
  Receipt Date: 20160721
  Transmission Date: 20161109
  Serious: Yes (Hospitalization)
  Sender: FDA-Public Use
  Company Number: IT-ROCHE-1586481

PATIENT
  Age: 65 Year
  Sex: Female
  Weight: 53 kg

DRUGS (22)
  1. PARACETAMOLO [Concomitant]
     Active Substance: ACETAMINOPHEN
     Indication: BONE PAIN
     Route: 048
     Dates: start: 201412, end: 20150504
  2. LYRICA [Concomitant]
     Active Substance: PREGABALIN
     Indication: NEURALGIA
     Route: 048
     Dates: start: 20150427
  3. PERIDON (ITALY) [Concomitant]
     Indication: NAUSEA
     Route: 048
     Dates: start: 20150505
  4. PERIDON (ITALY) [Concomitant]
     Indication: VOMITING
  5. SELEDIE [Concomitant]
     Indication: VENOUS THROMBOSIS
     Route: 058
     Dates: start: 20150507, end: 20150624
  6. PARACETAMOLO [Concomitant]
     Active Substance: ACETAMINOPHEN
     Route: 048
     Dates: start: 20150505, end: 20150527
  7. PARACETAMOLO [Concomitant]
     Active Substance: ACETAMINOPHEN
     Route: 048
     Dates: start: 20150528
  8. TARGIN [Concomitant]
     Active Substance: NALOXONE HYDROCHLORIDE\OXYCODONE HYDROCHLORIDE
     Indication: CHEST PAIN
     Route: 048
     Dates: start: 20150427, end: 20150527
  9. SELEPARINA [Concomitant]
     Active Substance: NADROPARIN CALCIUM
     Indication: DEEP VEIN THROMBOSIS
  10. NICETILE [Concomitant]
     Active Substance: ACETYLCARNITINE HYDROCHLORIDE
     Dosage: ONE CAPSULE
     Route: 048
     Dates: start: 20150705
  11. LANTUS [Concomitant]
     Active Substance: INSULIN GLARGINE
     Indication: DIABETES MELLITUS
     Route: 058
     Dates: start: 20150616
  12. OXYGEN. [Concomitant]
     Active Substance: OXYGEN
     Indication: DYSPNOEA
     Dosage: INHALED
     Route: 065
     Dates: start: 20150613, end: 20150821
  13. LEVOFLOXACINA [Concomitant]
     Active Substance: LEVOFLOXACIN
     Indication: PROPHYLAXIS
     Route: 048
     Dates: start: 20160604, end: 20160609
  14. URBASON [Concomitant]
     Active Substance: METHYLPREDNISOLONE
     Route: 048
     Dates: start: 20150604, end: 20150606
  15. TARGIN [Concomitant]
     Active Substance: NALOXONE HYDROCHLORIDE\OXYCODONE HYDROCHLORIDE
     Route: 048
     Dates: start: 20150528
  16. SELEPARINA [Concomitant]
     Active Substance: NADROPARIN CALCIUM
     Indication: ARTHRALGIA
     Route: 058
     Dates: start: 20150625
  17. ALDACTONE (ITALY) [Concomitant]
     Indication: OEDEMA PERIPHERAL
     Route: 048
     Dates: start: 20150604
  18. BETAMETHASONE. [Concomitant]
     Active Substance: BETAMETHASONE
     Indication: OPTIC NEURITIS
     Route: 050
     Dates: start: 20150721, end: 20150728
  19. APIDRA [Concomitant]
     Active Substance: INSULIN GLULISINE
     Indication: DIABETES MELLITUS
     Route: 058
     Dates: start: 20150529, end: 20150707
  20. ATEZOLIZUMAB [Suspect]
     Active Substance: ATEZOLIZUMAB
     Indication: NON-SMALL CELL LUNG CANCER
     Dosage: DATE OF THE MOST RECENT DOSE AT 1200 PRIOR TO AE ONSET 08/MAY/2015.
     Route: 042
     Dates: start: 20150326
  21. SELEPARINA [Concomitant]
     Active Substance: NADROPARIN CALCIUM
     Indication: OEDEMA
     Route: 058
     Dates: start: 20150427, end: 20150507
  22. OMEPRAZOLE. [Concomitant]
     Active Substance: OMEPRAZOLE
     Indication: PROPHYLAXIS
     Route: 048
     Dates: start: 201411

REACTIONS (1)
  - Hyperglycaemia [Recovered/Resolved]

NARRATIVE: CASE EVENT DATE: 20150528
